FAERS Safety Report 8860014 (Version 1)
Quarter: 2012Q4

REPORT INFORMATION
  Report Type: 
  Country: US (occurrence: US)
  Receive Date: 20121025
  Receipt Date: 20121025
  Transmission Date: 20130627
  Serious: Yes (Hospitalization)
  Sender: FDA-Public Use
  Company Number: US-BAYER-2012-109456

PATIENT
  Age: 28 Year
  Sex: Female

DRUGS (2)
  1. OCELLA [Suspect]
  2. MOTRIN [Concomitant]
     Indication: PAIN
     Dosage: occasional
     Route: 048

REACTIONS (1)
  - Cerebrovascular accident [None]
